FAERS Safety Report 20975381 (Version 2)
Quarter: 2022Q3

REPORT INFORMATION
  Report Type: Spontaneous
  Country: JP (occurrence: JP)
  Receive Date: 20220617
  Receipt Date: 20220701
  Transmission Date: 20221027
  Serious: Yes (Death)
  Sender: FDA-Public Use
  Company Number: JP-OTSUKA-2022_032123

PATIENT
  Age: 93 Year
  Sex: Female

DRUGS (7)
  1. TOLVAPTAN [Suspect]
     Active Substance: TOLVAPTAN
     Indication: Cardiac failure
     Dosage: 8 MG/DAY
     Route: 041
     Dates: start: 20220603, end: 20220609
  2. TOLVAPTAN [Suspect]
     Active Substance: TOLVAPTAN
     Indication: Fluid retention
  3. TOLVAPTAN [Suspect]
     Active Substance: TOLVAPTAN
     Indication: Diuretic therapy
  4. LASIX [Concomitant]
     Active Substance: FUROSEMIDE
     Indication: Product used for unknown indication
     Dosage: 10 MG/DAY
     Route: 042
     Dates: start: 20220509, end: 20220518
  5. LASIX [Concomitant]
     Active Substance: FUROSEMIDE
     Dosage: 20 MG/DAY
     Route: 042
     Dates: start: 20220519, end: 20220609
  6. CANRENOATE POTASSIUM [Concomitant]
     Active Substance: CANRENOATE POTASSIUM
     Indication: Product used for unknown indication
     Dosage: 200 MG/DAY
     Route: 042
     Dates: start: 20220509, end: 20220522
  7. CANRENOATE POTASSIUM [Concomitant]
     Active Substance: CANRENOATE POTASSIUM
     Dosage: 200 MG/DAY
     Route: 042
     Dates: start: 20220603, end: 20220609

REACTIONS (2)
  - Marasmus [Fatal]
  - Blood sodium increased [Unknown]

NARRATIVE: CASE EVENT DATE: 20220606
